FAERS Safety Report 4515000-0 (Version None)
Quarter: 2004Q4

REPORT INFORMATION
  Report Type: 
  Country: None (occurrence: None)
  Receive Date: 20041126
  Receipt Date: 20041115
  Transmission Date: 20050328
  Serious: Yes (Hospitalization)
  Sender: FDA-Public Use
  Company Number: 2004092934

PATIENT
  Age: 50 Year
  Sex: Female

DRUGS (4)
  1. SALAZOPRIN (SULFASALAZINE) [Suspect]
     Indication: RHEUMATOID ARTHRITIS
     Dosage: 1000 MG (500 MG, BID INTERVAL: DAILY) ORAL
     Route: 048
     Dates: start: 20041026, end: 20041112
  2. ALENDRONATE SODIUM [Concomitant]
  3. PREDNISOLONE [Concomitant]
  4. TROXIPIDE (TROXIPIDE) [Concomitant]

REACTIONS (3)
  - PLEURISY [None]
  - PNEUMONIA [None]
  - PYOTHORAX [None]
